FAERS Safety Report 7427589-2 (Version None)
Quarter: 2011Q2

REPORT INFORMATION
  Report Type: 
  Country: None (occurrence: None)
  Receive Date: 20110420
  Receipt Date: 20110412
  Transmission Date: 20111010
  Serious: Yes (Hospitalization)
  Sender: FDA-Public Use
  Company Number: US-B.I. PHARMACEUTICALS,INC./RIDGEFIELD-2011-BP-11175BP

PATIENT
  Sex: Female

DRUGS (3)
  1. FOSAMAX [Suspect]
  2. MOBIC [Suspect]
  3. PRADAXA [Suspect]
     Dates: start: 20101101

REACTIONS (5)
  - FATIGUE [None]
  - DECREASED APPETITE [None]
  - NAUSEA [None]
  - GASTROINTESTINAL HAEMORRHAGE [None]
  - HAEMOGLOBIN DECREASED [None]
